FAERS Safety Report 5798177-9 (Version None)
Quarter: 2008Q3

REPORT INFORMATION
  Report Type: 
  Country: None (occurrence: None)
  Receive Date: 20080702
  Receipt Date: 20080624
  Transmission Date: 20090109
  Serious: Yes (Disabling)
  Sender: FDA-Public Use
  Company Number: A0734541A

PATIENT
  Age: 65 Year
  Sex: Female

DRUGS (3)
  1. WELLBUTRIN XL [Suspect]
     Indication: DEPRESSION
     Dosage: 300MG PER DAY
     Route: 048
     Dates: start: 20080605, end: 20080622
  2. LEXAPRO [Concomitant]
  3. UNSPECIFIED THYROID MEDICATION [Concomitant]

REACTIONS (3)
  - DIZZINESS [None]
  - IMPAIRED DRIVING ABILITY [None]
  - VISION BLURRED [None]
